FAERS Safety Report 25675273 (Version 1)
Quarter: 2025Q3

REPORT INFORMATION
  Report Type: Other
  Country: CA (occurrence: CA)
  Receive Date: 20250813
  Receipt Date: 20250813
  Transmission Date: 20251020
  Serious: Yes (Hospitalization)
  Sender: LUPIN
  Company Number: CA-LUPIN PHARMACEUTICALS INC.-2025-07188

PATIENT
  Sex: Female

DRUGS (5)
  1. PROPRANOLOL [Suspect]
     Active Substance: PROPRANOLOL HYDROCHLORIDE
     Indication: Migraine
     Route: 065
  2. CANDESARTAN CILEXETIL\HYDROCHLOROTHIAZIDE [Suspect]
     Active Substance: CANDESARTAN CILEXETIL\HYDROCHLOROTHIAZIDE
     Indication: Migraine
     Dosage: 8 MILLIGRAM, QD
  3. TOPIRAMATE [Suspect]
     Active Substance: TOPIRAMATE
     Indication: Migraine
     Route: 065
  4. ELAVIL [Concomitant]
     Active Substance: AMITRIPTYLINE HYDROCHLORIDE
     Indication: Product used for unknown indication
     Route: 065
  5. SUMATRIPTAN [Concomitant]
     Active Substance: SUMATRIPTAN
     Indication: Product used for unknown indication
     Route: 065

REACTIONS (12)
  - Dermatitis contact [Unknown]
  - Dizziness [Unknown]
  - Dry mouth [Unknown]
  - Flushing [Unknown]
  - Headache [Unknown]
  - Hypoaesthesia [Unknown]
  - Migraine with aura [Unknown]
  - Paraesthesia oral [Unknown]
  - Perfume sensitivity [Unknown]
  - Poor quality sleep [Unknown]
  - Drug intolerance [Unknown]
  - Off label use [Unknown]
